FAERS Safety Report 23530100 (Version 1)
Quarter: 2024Q1

REPORT INFORMATION
  Report Type: Spontaneous
  Country: NL (occurrence: NL)
  Receive Date: 20240216
  Receipt Date: 20240216
  Transmission Date: 20240409
  Serious: Yes (Life-Threatening, Disabling, Other)
  Sender: FDA-Public Use
  Company Number: None

PATIENT
  Age: 10 Year
  Sex: Female
  Weight: 62 kg

DRUGS (5)
  1. BETAMETHASONE [Suspect]
     Active Substance: BETAMETHASONE\BETAMETHASONE DIPROPIONATE
     Indication: Eczema
     Dosage: TO LUBRICATION SCHEDULE, TWO YEARS, BRAND NAME NOT SPECIFIED
     Route: 065
     Dates: start: 20160621, end: 20200614
  2. TACROLIMUS [Concomitant]
     Active Substance: TACROLIMUS
     Indication: Product used for unknown indication
     Dosage: DOSAGE: 1 MG/G BRAND NAME NOT SPECIFIED
     Route: 065
  3. CLOBETASONE BUTYRATE [Suspect]
     Active Substance: CLOBETASONE BUTYRATE
     Indication: Eczema
     Dosage: TO LUBRICATION SCHEDULE, UP TO AND INCLUDING JUNE 2020, CLOBETASON
     Route: 065
     Dates: start: 20160102, end: 20200614
  4. CUTIVATE [Suspect]
     Active Substance: FLUTICASONE PROPIONATE
     Indication: Eczema
     Dosage: BY LUBRICATION SCHEDULE, NUMBER OF YEARS, HYDROPHILIC, FLUTICASON
     Route: 065
     Dates: start: 20060302, end: 20200614
  5. CLOBETASOL [Suspect]
     Active Substance: CLOBETASOL
     Indication: Eczema
     Dosage: 0,5 MG/G (MILLIGRAM PER GRAM),HYDROPHOBIC OINTMENT 0.05%,CLOBETASOL
     Route: 065
     Dates: start: 20200530, end: 20200614

REACTIONS (15)
  - Steroid withdrawal syndrome [Recovering/Resolving]
  - Steroid dependence [Recovering/Resolving]
  - Pruritus [Recovering/Resolving]
  - Chills [Recovering/Resolving]
  - Skin discomfort [Recovering/Resolving]
  - Dehydration [Recovering/Resolving]
  - Condition aggravated [Recovering/Resolving]
  - Insomnia [Recovering/Resolving]
  - Erythema [Recovering/Resolving]
  - Fatigue [Recovering/Resolving]
  - Alopecia [Recovering/Resolving]
  - Wound [Recovering/Resolving]
  - Depressed mood [Recovering/Resolving]
  - Weight decreased [Recovering/Resolving]
  - Erythema [Recovering/Resolving]
